FAERS Safety Report 14612794 (Version 4)
Quarter: 2018Q2

REPORT INFORMATION
  Report Type: Report from Study
  Country: US (occurrence: US)
  Receive Date: 20180308
  Receipt Date: 20180430
  Transmission Date: 20180711
  Serious: Yes (Hospitalization)
  Sender: FDA-Public Use
  Company Number: US-JNJFOC-20180308143

PATIENT
  Age: 19 Year
  Sex: Male
  Weight: 60.8 kg

DRUGS (7)
  1. BUDESONIDE. [Concomitant]
     Active Substance: BUDESONIDE
     Route: 065
  2. LEVSIN [Concomitant]
     Active Substance: HYOSCYAMINE SULFATE
     Route: 065
  3. OMEPRAZOLE. [Concomitant]
     Active Substance: OMEPRAZOLE
     Route: 065
  4. REMICADE [Suspect]
     Active Substance: INFLIXIMAB
     Indication: INFLAMMATORY BOWEL DISEASE
     Route: 042
     Dates: start: 20100207, end: 20100319
  5. VITAMIN D [Concomitant]
     Active Substance: CHOLECALCIFEROL
     Route: 065
  6. IRON SULFATE [Concomitant]
     Active Substance: FERROUS SULFATE ANHYDROUS
     Route: 065
  7. ENTYVIO [Concomitant]
     Active Substance: VEDOLIZUMAB
     Route: 065

REACTIONS (2)
  - Peritonitis [Recovered/Resolved with Sequelae]
  - Crohn^s disease [Recovered/Resolved with Sequelae]

NARRATIVE: CASE EVENT DATE: 20180301
